FAERS Safety Report 9259345 (Version 15)
Quarter: 2016Q1

REPORT INFORMATION
  Report Type: Report from Study
  Country: CA (occurrence: CA)
  Receive Date: 20130427
  Receipt Date: 20160216
  Transmission Date: 20160526
  Serious: Yes (Hospitalization, Other)
  Sender: FDA-Public Use
  Company Number: CA-ROCHE-1191954

PATIENT
  Age: 58 Year
  Sex: Male
  Weight: 69 kg

DRUGS (14)
  1. ACTEMRA [Suspect]
     Active Substance: TOCILIZUMAB
     Route: 042
     Dates: start: 20141210
  2. ACTEMRA [Suspect]
     Active Substance: TOCILIZUMAB
     Indication: RHEUMATOID ARTHRITIS
     Route: 042
     Dates: start: 20101221
  3. ACLASTA [Concomitant]
     Active Substance: ZOLEDRONIC ACID
  4. DURAGESIC (CANADA) [Concomitant]
  5. ACTEMRA [Suspect]
     Active Substance: TOCILIZUMAB
     Route: 042
     Dates: start: 20160119
  6. CORTISONE [Concomitant]
     Active Substance: CORTISONE\HYDROCORTISONE
  7. ACTEMRA [Suspect]
     Active Substance: TOCILIZUMAB
     Route: 042
     Dates: start: 20140603
  8. PANTOLOC [Concomitant]
     Active Substance: PANTOPRAZOLE SODIUM
  9. METHOTREXATE [Concomitant]
     Active Substance: METHOTREXATE
  10. ACTEMRA [Suspect]
     Active Substance: TOCILIZUMAB
     Route: 042
     Dates: start: 20120605
  11. TYLENOL [Concomitant]
     Active Substance: ACETAMINOPHEN
  12. ACTEMRA [Suspect]
     Active Substance: TOCILIZUMAB
     Route: 042
     Dates: start: 20111004
  13. ACTEMRA [Suspect]
     Active Substance: TOCILIZUMAB
     Route: 042
     Dates: start: 20141124
  14. FOLIC ACID. [Concomitant]
     Active Substance: FOLIC ACID

REACTIONS (19)
  - Neck pain [Unknown]
  - Bronchitis [Not Recovered/Not Resolved]
  - Pain in extremity [Unknown]
  - Depression [Unknown]
  - Arthralgia [Not Recovered/Not Resolved]
  - Joint instability [Unknown]
  - Headache [Unknown]
  - Bursitis [Unknown]
  - Fall [Unknown]
  - Weight decreased [Not Recovered/Not Resolved]
  - Postoperative wound infection [Not Recovered/Not Resolved]
  - Neuralgia [Not Recovered/Not Resolved]
  - Oxygen saturation decreased [Unknown]
  - Insomnia [Unknown]
  - Rheumatoid arthritis [Recovering/Resolving]
  - Haematoma [Recovered/Resolved]
  - Nasopharyngitis [Not Recovered/Not Resolved]
  - Blood pressure fluctuation [Unknown]
  - Night sweats [Unknown]

NARRATIVE: CASE EVENT DATE: 2013
